FAERS Safety Report 10904472 (Version 2)
Quarter: 2015Q1

REPORT INFORMATION
  Report Type: Spontaneous
  Country: JP (occurrence: None)
  Receive Date: 20150306
  Receipt Date: 20150320
  Transmission Date: 20150721
  Serious: Yes (Hospitalization)
  Sender: FDA-Public Use
  Company Number: 2015BCR00086

PATIENT
  Age: 31 Year
  Sex: Female

DRUGS (5)
  1. RESPLEN [Suspect]
     Active Substance: EPRAZINONE
     Indication: NASOPHARYNGITIS
     Route: 048
     Dates: start: 20150211, end: 20150214
  2. LUNABELL [Suspect]
     Active Substance: ETHINYL ESTRADIOL\NORETHINDRONE
     Indication: DYSMENORRHOEA
     Route: 048
     Dates: start: 201410, end: 201502
  3. CALONAL [Suspect]
     Active Substance: ACETAMINOPHEN
     Indication: INFLUENZA
     Route: 048
     Dates: start: 20150212, end: 20150213
  4. LOXONIN [Suspect]
     Active Substance: LOXOPROFEN SODIUM
     Indication: NASOPHARYNGITIS
     Route: 048
     Dates: start: 20150211, end: 20150212
  5. RAPIACTA [Suspect]
     Active Substance: PERAMIVIR
     Indication: INFLUENZA
     Route: 042
     Dates: start: 20150212, end: 20150212

REACTIONS (1)
  - Cerebral infarction [None]

NARRATIVE: CASE EVENT DATE: 20150214
